FAERS Safety Report 4727745-8 (Version None)
Quarter: 2005Q3

REPORT INFORMATION
  Report Type: 
  Country: None (occurrence: None)
  Receive Date: 20050725
  Receipt Date: 20050527
  Transmission Date: 20060218
  Serious: No
  Sender: FDA-Public Use
  Company Number: USA050598895

PATIENT
  Age: 9 Year
  Sex: Male

DRUGS (1)
  1. STRATTERA [Suspect]
     Dosage: 25 MG IN THE EVENING
     Dates: start: 20050523

REACTIONS (4)
  - ABNORMAL BEHAVIOUR [None]
  - DECREASED APPETITE [None]
  - MALAISE [None]
  - SOMNOLENCE [None]
